FAERS Safety Report 7600393-8 (Version None)
Quarter: 2011Q3

REPORT INFORMATION
  Report Type: 
  Country: None (occurrence: None)
  Receive Date: 20110711
  Receipt Date: 20110629
  Transmission Date: 20111222
  Serious: Yes (Hospitalization, Other)
  Sender: FDA-Public Use
  Company Number: US-ELI_LILLY_AND_COMPANY-US201103005434

PATIENT
  Sex: Female
  Weight: 84 kg

DRUGS (14)
  1. FORTEO [Suspect]
     Dosage: 20 UG, DAILY (1/D)
     Route: 058
  2. LAC-HYDRIN [Concomitant]
     Route: 061
  3. INSULIN [Concomitant]
     Dosage: UNK, 3/D
     Route: 065
  4. ASPIRIN [Concomitant]
     Dosage: 81 MG, UNK
     Route: 048
  5. CALCIUM CARBONATE [Concomitant]
     Dosage: 650 MG, UNK
     Route: 048
  6. VITAMIN D [Concomitant]
     Dosage: 50000 U, UNK
     Route: 048
  7. LISINOPRIL [Concomitant]
     Dosage: 40 UNK, UNK
     Route: 048
  8. INSULIN LISPRO [Concomitant]
     Route: 058
  9. HYDROCORTISONE [Concomitant]
     Route: 061
  10. MULTI-VITAMINS [Concomitant]
     Route: 048
  11. FERROUS SULFATE TAB [Concomitant]
     Route: 048
  12. FORTEO [Suspect]
     Indication: OSTEOPOROSIS
     Dosage: 20 UG, DAILY (1/D)
     Route: 058
     Dates: start: 20091201
  13. CRESTOR [Concomitant]
     Dosage: 40 MG, UNK
     Route: 048
  14. MULTIVITAMINS WITH IRON            /02277801/ [Concomitant]
     Dosage: UNK, QD
     Route: 048

REACTIONS (2)
  - GASTROINTESTINAL STOMA COMPLICATION [None]
  - SMALL INTESTINAL OBSTRUCTION [None]
